FAERS Safety Report 5233738-7 (Version None)
Quarter: 2007Q1

REPORT INFORMATION
  Report Type: 
  Country: None (occurrence: None)
  Receive Date: 20061208
  Receipt Date: 20060317
  Transmission Date: 20070707
  Serious: Yes (Other)
  Sender: FDA-Public Use
  Company Number: 2006UW04669

PATIENT

DRUGS (1)
  1. CRESTOR [Suspect]

REACTIONS (1)
  - HIGH DENSITY LIPOPROTEIN INCREASED [None]
